FAERS Safety Report 7852911-2 (Version None)
Quarter: 2011Q4

REPORT INFORMATION
  Report Type: 
  Country: None (occurrence: None)
  Receive Date: 20111026
  Receipt Date: 20111020
  Transmission Date: 20120403
  Serious: Yes (Hospitalization)
  Sender: FDA-Public Use
  Company Number: NL-AMGEN-NLDSP2011052402

PATIENT
  Age: 80 Year
  Sex: Female
  Weight: 48 kg

DRUGS (14)
  1. RITUXIMAB [Suspect]
     Indication: DIFFUSE LARGE B-CELL LYMPHOMA
     Dosage: 540 MG, Q2WK
     Route: 042
     Dates: start: 20110906
  2. PREDNISONE [Suspect]
     Indication: DIFFUSE LARGE B-CELL LYMPHOMA
     Dosage: 50 MG, UNK
     Route: 048
     Dates: start: 20110901
  3. DOXORUBICIN HCL [Suspect]
     Indication: DIFFUSE LARGE B-CELL LYMPHOMA
     Dosage: 70 MG, Q2WK
     Route: 042
     Dates: start: 20110906
  4. ASCAL                              /00002702/ [Concomitant]
     Indication: TRANSIENT ISCHAEMIC ATTACK
     Dosage: 100 MG, UNK
     Route: 048
     Dates: start: 20000101
  5. GRANISETRON [Concomitant]
     Indication: NAUSEA
     Dosage: 1 MG, UNK
     Route: 048
     Dates: start: 20110912, end: 20110914
  6. NEXIUM [Concomitant]
     Indication: GASTRITIS
     Dosage: 40 MG, UNK
     Route: 048
     Dates: start: 20090101, end: 20110914
  7. NEUPOGEN [Suspect]
     Indication: DIFFUSE LARGE B-CELL LYMPHOMA
     Dosage: 6 MG, Q2WK
     Route: 058
     Dates: start: 20110907
  8. COTRIM [Concomitant]
     Indication: PROPHYLAXIS
     Route: 048
  9. METFORMIN HCL [Concomitant]
     Indication: DIABETES MELLITUS
     Dosage: 500 MG, UNK
     Route: 048
     Dates: start: 20110908, end: 20110914
  10. CYCLOPHOSPHAMIDE [Suspect]
     Indication: DIFFUSE LARGE B-CELL LYMPHOMA
     Dosage: 1070 MG, Q2WK
     Route: 042
     Dates: start: 20110906
  11. VALACICLOVIR [Concomitant]
     Indication: PROPHYLAXIS
     Dosage: 500 MG, UNK
     Route: 048
     Dates: start: 20110915
  12. METOCLOPRAMIDE [Concomitant]
     Indication: NAUSEA
     Dosage: 20 MG, UNK
     Route: 054
  13. VINCRISTINE [Suspect]
     Indication: DIFFUSE LARGE B-CELL LYMPHOMA
     Dosage: 2 MG, Q2WK
     Route: 042
     Dates: start: 20110906
  14. MOVICOLON [Concomitant]
     Indication: CONSTIPATION
     Dosage: 14 G, UNK
     Route: 048
     Dates: start: 20110901, end: 20110914

REACTIONS (2)
  - MUSCULAR WEAKNESS [None]
  - HYPOPHOSPHATAEMIA [None]
